FAERS Safety Report 17922914 (Version 2)
Quarter: 2020Q3

REPORT INFORMATION
  Report Type: Spontaneous
  Country: DE (occurrence: DE)
  Receive Date: 20200622
  Receipt Date: 20200821
  Transmission Date: 20201103
  Serious: Yes (Other)
  Sender: FDA-Public Use
  Company Number: DE-JNJFOC-20200623779

PATIENT
  Age: 79 Year
  Sex: Male
  Weight: 75 kg

DRUGS (7)
  1. PREDNISOLONE. [Concomitant]
     Active Substance: PREDNISOLONE
     Dosage: UNK
     Dates: start: 2016
  2. DEXAMETHASONE. [Concomitant]
     Active Substance: DEXAMETHASONE
     Indication: BRAIN OEDEMA
  3. FRAGMIN P [Concomitant]
     Active Substance: DALTEPARIN SODIUM
     Dosage: 7500 IU
  4. PANTOPRAZOLE [Concomitant]
     Active Substance: PANTOPRAZOLE
  5. XARELTO [Suspect]
     Active Substance: RIVAROXABAN
     Indication: PARANEOPLASTIC THROMBOSIS
     Dosage: 15 MG, QD
     Route: 048
     Dates: start: 201609
  6. FOLIC ACID. [Concomitant]
     Active Substance: FOLIC ACID
  7. NEBIVOLOL. [Concomitant]
     Active Substance: NEBIVOLOL

REACTIONS (5)
  - Disseminated intravascular coagulation [Unknown]
  - Ecchymosis [Recovered/Resolved]
  - Skin haemorrhage [Unknown]
  - Spontaneous heparin-induced thrombocytopenia syndrome [Recovered/Resolved]
  - Ulcer haemorrhage [Recovered/Resolved]
